FAERS Safety Report 5372829-7 (Version None)
Quarter: 2007Q2

REPORT INFORMATION
  Report Type: 
  Country: None (occurrence: None)
  Receive Date: 20070620
  Receipt Date: 20061012
  Transmission Date: 20071010
  Serious: Yes (Other)
  Sender: FDA-Public Use
  Company Number: 466961

PATIENT
  Age: 41 Year
  Sex: Male

DRUGS (4)
  1. INTERFERON ALFA (INTERFERON ALFA) [Suspect]
     Indication: HEPATITIS C
  2. RIBAVIRIN [Suspect]
     Indication: HEPATITIS C
  3. LISINOPRIL [Concomitant]
  4. GLIPIZIDE [Concomitant]

REACTIONS (1)
  - BASEDOW'S DISEASE [None]
